FAERS Safety Report 6480352-1 (Version None)
Quarter: 2009Q4

REPORT INFORMATION
  Report Type: 
  Country: None (occurrence: None)
  Receive Date: 20091208
  Receipt Date: 20091203
  Transmission Date: 20100525
  Serious: Yes (Other)
  Sender: FDA-Public Use
  Company Number: CA-BAYER-200941819NA

PATIENT
  Age: 64 Year
  Sex: Male

DRUGS (1)
  1. AVELOX [Suspect]
     Indication: INFECTION
     Route: 048
     Dates: start: 20091129, end: 20091129

REACTIONS (3)
  - BLINDNESS TRANSIENT [None]
  - VISION BLURRED [None]
  - VISUAL IMPAIRMENT [None]
